FAERS Safety Report 21886207 (Version 1)
Quarter: 2023Q1

REPORT INFORMATION
  Report Type: Spontaneous
  Country: HK (occurrence: HK)
  Receive Date: 20230119
  Receipt Date: 20230119
  Transmission Date: 20230418
  Serious: Yes (Hospitalization, Other)
  Sender: FDA-Public Use
  Company Number: HK-009507513-2301HKG006385

PATIENT
  Age: 64 Year
  Sex: Female

DRUGS (4)
  1. PEMBROLIZUMAB [Suspect]
     Active Substance: PEMBROLIZUMAB
     Indication: Uterine cancer
     Dosage: 20MG IV (Q3W)
     Route: 042
     Dates: start: 20220618, end: 20220618
  2. PEMBROLIZUMAB [Suspect]
     Active Substance: PEMBROLIZUMAB
     Dosage: 20MG IV (Q3W)
     Route: 042
     Dates: start: 20220716, end: 20220716
  3. LENVATINIB MESYLATE [Suspect]
     Active Substance: LENVATINIB MESYLATE
     Indication: Uterine cancer
     Dosage: 20MG DAILY, PO
     Route: 048
     Dates: start: 20220618, end: 20220618
  4. LENVATINIB MESYLATE [Suspect]
     Active Substance: LENVATINIB MESYLATE
     Dosage: 20MG DAILY, PO
     Route: 048
     Dates: start: 20220716, end: 20220716

REACTIONS (5)
  - Diabetic ketoacidosis [Unknown]
  - Vomiting [Unknown]
  - Hyperglycaemia [Unknown]
  - Product use issue [Unknown]
  - Product use in unapproved indication [Unknown]

NARRATIVE: CASE EVENT DATE: 20220101
